FAERS Safety Report 4415340-X (Version None)
Quarter: 2004Q2

REPORT INFORMATION
  Report Type: 
  Country: None (occurrence: None)
  Receive Date: 20040630
  Receipt Date: 20030630
  Transmission Date: 20050107
  Serious: Yes (Hospitalization, Other)
  Sender: FDA-Public Use
  Company Number: 2003020610

PATIENT
  Sex: Female
  Weight: 49.8957 kg

DRUGS (3)
  1. ZOLOFT [Suspect]
     Indication: DEPRESSION
     Dosage: 50 MG (DAILY), ORAL
     Route: 048
     Dates: start: 20000215
  2. LITHIUM CARBONATE [Concomitant]
  3. CLONAZEPAM [Concomitant]

REACTIONS (4)
  - DEPRESSION [None]
  - MOOD SWINGS [None]
  - STRESS SYMPTOMS [None]
  - SUICIDE ATTEMPT [None]
